FAERS Safety Report 5670127-5 (Version None)
Quarter: 2008Q1

REPORT INFORMATION
  Report Type: 
  Country: None (occurrence: None)
  Receive Date: 20080312
  Receipt Date: 20080229
  Transmission Date: 20080703
  Serious: Yes (Hospitalization)
  Sender: FDA-Public Use
  Company Number: TCI2008A00831

PATIENT
  Age: 58 Year
  Sex: Male

DRUGS (2)
  1. ACTOS [Suspect]
     Indication: TYPE 2 DIABETES MELLITUS
     Dosage: 15 MG (15 MG, 1 IN 1 D), PER ORAL
     Route: 048
     Dates: start: 20071214, end: 20080128
  2. LIPITOR [Concomitant]

REACTIONS (4)
  - GENERALISED OEDEMA [None]
  - PLEURAL EFFUSION [None]
  - RENAL DISORDER [None]
  - RENAL FAILURE ACUTE [None]
